FAERS Safety Report 9848868 (Version 1)
Quarter: 2014Q1

REPORT INFORMATION
  Report Type: Spontaneous
  Country: US (occurrence: None)
  Receive Date: 20140127
  Receipt Date: 20140127
  Transmission Date: 20141002
  Serious: Yes (Hospitalization, Disabling, Other)
  Sender: FDA-Public Use
  Company Number: None

PATIENT
  Age: 63 Year
  Sex: Female
  Weight: 68.04 kg

DRUGS (1)
  1. NOVOCAIN [Suspect]

REACTIONS (10)
  - Herpes zoster [None]
  - Cellulitis [None]
  - Headache [None]
  - Ear pain [None]
  - Gingivitis [None]
  - Erythema [None]
  - Swelling face [None]
  - Contusion [None]
  - Exposed bone in jaw [None]
  - Tooth fracture [None]
